FAERS Safety Report 13584803 (Version 3)
Quarter: 2017Q3

REPORT INFORMATION
  Report Type: Spontaneous
  Country: CH (occurrence: CH)
  Receive Date: 20170526
  Receipt Date: 20170830
  Transmission Date: 20171127
  Serious: Yes (Other)
  Sender: FDA-Public Use
  Company Number: CH-GLENMARK PHARMACEUTICALS-2017GMK027630

PATIENT
  Sex: Male
  Weight: 2.45 kg

DRUGS (8)
  1. CARVEDILOL. [Suspect]
     Active Substance: CARVEDILOL
     Indication: BLOOD PRESSURE INCREASED
     Dosage: 0.04 MG/KG, BID
     Route: 065
  2. SPIRONOLACTONE. [Interacting]
     Active Substance: SPIRONOLACTONE
     Indication: DIURETIC THERAPY
     Dosage: 1.2 MG/KG/DAY, UNK
     Route: 048
  3. TEICOPLANIN [Concomitant]
     Active Substance: TEICOPLANIN
     Indication: ANTIBIOTIC THERAPY
     Dosage: UNK
     Route: 065
  4. MILRINONE [Concomitant]
     Active Substance: MILRINONE
     Indication: CARDIAC DISCOMFORT
     Dosage: 0.5 MCG/KG/MIN, UNK
     Route: 065
  5. DIGOXIN. [Interacting]
     Active Substance: DIGOXIN
     Indication: POSITIVE CARDIAC INOTROPIC EFFECT
     Dosage: 3 MCG/KG, QD
     Route: 065
  6. CARVEDILOL. [Interacting]
     Active Substance: CARVEDILOL
     Indication: SINUS TACHYCARDIA
  7. FUROSEMID                          /00032601/ [Concomitant]
     Active Substance: FUROSEMIDE
     Indication: DIURETIC THERAPY
     Dosage: 1.6?2.5 MG/KG/DAY, UNK
     Route: 048
  8. GENTAMICIN. [Concomitant]
     Active Substance: GENTAMICIN
     Indication: ANTIBIOTIC THERAPY
     Dosage: UNK
     Route: 065

REACTIONS (6)
  - Atrioventricular block second degree [Recovered/Resolved]
  - Drug interaction [Recovered/Resolved]
  - Arrhythmia [Recovered/Resolved]
  - Atrioventricular block first degree [Recovered/Resolved]
  - Toxicity to various agents [Recovered/Resolved]
  - Cardioactive drug level increased [Recovered/Resolved]
